FAERS Safety Report 14202437 (Version 3)
Quarter: 2018Q1

REPORT INFORMATION
  Report Type: Report from Study
  Country: IT (occurrence: IT)
  Receive Date: 20171117
  Receipt Date: 20180319
  Transmission Date: 20180508
  Serious: Yes (Hospitalization, Other)
  Sender: FDA-Public Use
  Company Number: PHHO2017IT012814

PATIENT
  Age: 62 Year
  Sex: Male
  Weight: 107.1 kg

DRUGS (8)
  1. RANOLAZINE. [Concomitant]
     Active Substance: RANOLAZINE
     Indication: AORTIC STENOSIS
     Dosage: 375 MG, BID
     Route: 065
     Dates: start: 20150704
  2. OMEPRAZOLE. [Concomitant]
     Active Substance: OMEPRAZOLE
     Indication: PROPHYLAXIS
     Dosage: 20 MG, QD
     Route: 065
     Dates: start: 20120524
  3. ACZ885 [Suspect]
     Active Substance: CANAKINUMAB
     Indication: CARDIOVASCULAR EVENT PROPHYLAXIS
     Dosage: 300 MG, QUARTERLY
     Route: 058
     Dates: start: 20170224, end: 20170516
  4. LOSARTAN. [Concomitant]
     Active Substance: LOSARTAN
     Indication: AORTIC STENOSIS
     Dosage: 50 MG, BID
     Route: 065
     Dates: start: 20150704
  5. METOPROLOL. [Concomitant]
     Active Substance: METOPROLOL
     Indication: MYOCARDIAL INFARCTION
     Dosage: 200 MG, QD
     Route: 065
     Dates: start: 20120524
  6. CARDIRENE [Concomitant]
     Active Substance: ASPIRIN DL-LYSINE
     Indication: PROPHYLAXIS
     Dosage: 160 MG, QD
     Route: 065
     Dates: start: 20120524
  7. ACZ885 [Suspect]
     Active Substance: CANAKINUMAB
     Indication: CARDIOVASCULAR EVENT PROPHYLAXIS
     Dosage: 150 MG, QUARTERLY
     Route: 058
     Dates: start: 20171107
  8. ATORVASTATIN [Concomitant]
     Active Substance: ATORVASTATIN
     Indication: DYSLIPIDAEMIA
     Dosage: 40 MG, QD
     Route: 065
     Dates: start: 20130121

REACTIONS (1)
  - Pneumonia [Recovered/Resolved]
